FAERS Safety Report 26043062 (Version 1)
Quarter: 2025Q4

REPORT INFORMATION
  Report Type: Spontaneous
  Country: US (occurrence: US)
  Receive Date: 20251113
  Receipt Date: 20251113
  Transmission Date: 20260118
  Serious: Yes (Hospitalization)
  Sender: ANI
  Company Number: US-ANIPHARMA-2025-US-048736

PATIENT
  Age: 54 Year
  Sex: Female
  Weight: 92.99 kg

DRUGS (17)
  1. CORTICOTROPIN [Suspect]
     Active Substance: CORTICOTROPIN
     Indication: Polymyositis
     Dosage: 80 UNITS SUBCUTANEOUS TWO TIMES PER WEEK
     Route: 058
     Dates: start: 202505
  2. OMEPRAZOLE [Concomitant]
     Active Substance: OMEPRAZOLE
  3. COLCHICINE [Concomitant]
     Active Substance: COLCHICINE
  4. VITAMIN D3 [Concomitant]
     Active Substance: CHOLECALCIFEROL
  5. QC WOMENS DAILY MULTIVITAMIN [Concomitant]
  6. APPLE CIDER VINEGAR [Concomitant]
     Active Substance: APPLE CIDER VINEGAR
  7. FIBER DIET [Concomitant]
  8. IRON [Concomitant]
     Active Substance: IRON
  9. ASPIRIN [Concomitant]
     Active Substance: ASPIRIN
  10. BACTRIM DS [Concomitant]
     Active Substance: SULFAMETHOXAZOLE\TRIMETHOPRIM
  11. PREDNISONE [Concomitant]
     Active Substance: PREDNISONE
  12. LEVOTHYROXINE SODIUM [Concomitant]
     Active Substance: LEVOTHYROXINE SODIUM
  13. LOSARTAN POTASSIUM [Concomitant]
     Active Substance: LOSARTAN POTASSIUM
  14. NIFEDIPINE [Concomitant]
     Active Substance: NIFEDIPINE
  15. HYDROCHLOROTHIAZIDE [Concomitant]
     Active Substance: HYDROCHLOROTHIAZIDE
  16. BELBUCA [Concomitant]
     Active Substance: BUPRENORPHINE HYDROCHLORIDE
  17. DULOXETINE HYDROCHLORIDE [Concomitant]
     Active Substance: DULOXETINE HYDROCHLORIDE

REACTIONS (1)
  - Infection [Unknown]

NARRATIVE: CASE EVENT DATE: 20251013
